FAERS Safety Report 5417608-7 (Version None)
Quarter: 2007Q3

REPORT INFORMATION
  Report Type: 
  Country: None (occurrence: None)
  Receive Date: 20070718
  Receipt Date: 20070326
  Transmission Date: 20080115
  Serious: Yes (Hospitalization, Other)
  Sender: FDA-Public Use
  Company Number: 2007024521

PATIENT
  Sex: Female

DRUGS (1)
  1. CELEBREX [Suspect]
     Indication: ARTHRITIS
     Dosage: 100 MG (100 MG, 1 IN 1 D)
     Dates: start: 19980901, end: 19981001

REACTIONS (1)
  - ISCHAEMIC STROKE [None]
